FAERS Safety Report 16653053 (Version 1)
Quarter: 2019Q3

REPORT INFORMATION
  Report Type: Spontaneous
  Country: US (occurrence: US)
  Receive Date: 20190731
  Receipt Date: 20190731
  Transmission Date: 20191004
  Serious: No
  Sender: FDA-Public Use
  Company Number: US-009507513-1907USA016626

PATIENT
  Age: 75 Year
  Sex: Male

DRUGS (1)
  1. PRINIVIL [Suspect]
     Active Substance: LISINOPRIL
     Dosage: 1 TABLET ONCE DAILY
     Route: 048
     Dates: start: 201905, end: 201906

REACTIONS (4)
  - Dry throat [Not Recovered/Not Resolved]
  - Cough [Recovering/Resolving]
  - Dysphonia [Recovering/Resolving]
  - Lymph node pain [Recovering/Resolving]

NARRATIVE: CASE EVENT DATE: 201905
